FAERS Safety Report 9228185 (Version 1)
Quarter: 2013Q2

REPORT INFORMATION
  Report Type: Report from Study
  Country: JP (occurrence: JP)
  Receive Date: 20130412
  Receipt Date: 20130412
  Transmission Date: 20140414
  Serious: Yes (Hospitalization, Other)
  Sender: FDA-Public Use
  Company Number: PHHY2013JP035571

PATIENT
  Sex: Male
  Weight: 64 kg

DRUGS (4)
  1. AFINITOR [Suspect]
     Indication: METASTATIC RENAL CELL CARCINOMA
     Dosage: 10 MG/DAY
     Route: 048
     Dates: start: 20120516, end: 20120603
  2. SUNITINIB MALATE [Concomitant]
     Indication: METASTATIC RENAL CELL CARCINOMA
     Dosage: 50 MG
     Dates: start: 20120328, end: 20120425
  3. THYRADIN S [Concomitant]
     Dosage: 50 UG
     Route: 048
     Dates: start: 20120411, end: 20120707
  4. DEPAS [Concomitant]
     Dosage: 0.5 MG
     Route: 048
     Dates: start: 20120407, end: 20120707

REACTIONS (3)
  - Gastrointestinal haemorrhage [Recovering/Resolving]
  - C-reactive protein increased [Unknown]
  - Anaemia [Unknown]
